FAERS Safety Report 7335485-4 (Version None)
Quarter: 2011Q1

REPORT INFORMATION
  Report Type: 
  Country: None (occurrence: None)
  Receive Date: 20110307
  Receipt Date: 20110225
  Transmission Date: 20110831
  Serious: Yes (Hospitalization)
  Sender: FDA-Public Use
  Company Number: GB-MPIJNJ-2011-00677

PATIENT

DRUGS (5)
  1. DEXAMETHASONE [Suspect]
     Indication: MULTIPLE MYELOMA
     Dosage: 40 MG, UNK
     Route: 042
     Dates: start: 20110118, end: 20110211
  2. ALLOPURINOL [Suspect]
  3. DOXORUBICIN [Suspect]
     Indication: MULTIPLE MYELOMA
     Dosage: 3.3 MG, UNK
     Route: 042
     Dates: start: 20110118, end: 20110211
  4. ONDANSETRON [Suspect]
     Indication: PRODUCT USED FOR UNKNOWN INDICATION
     Dosage: 8 MG, BID
     Route: 048
     Dates: start: 20110118, end: 20110215
  5. VELCADE [Suspect]
     Indication: MULTIPLE MYELOMA
     Dosage: 2.4 MG, UNK
     Route: 042
     Dates: start: 20110118, end: 20110211

REACTIONS (3)
  - NEUTROPENIC SEPSIS [None]
  - VOMITING [None]
  - CONSTIPATION [None]
